FAERS Safety Report 9210594 (Version 3)
Quarter: 2013Q3

REPORT INFORMATION
  Report Type: Spontaneous
  Country: US (occurrence: US)
  Receive Date: 20130404
  Receipt Date: 20130919
  Transmission Date: 20140515
  Serious: Yes (Other)
  Sender: FDA-Public Use
  Company Number: US-PFIZER INC-2013107557

PATIENT
  Sex: Female

DRUGS (1)
  1. LYRICA [Suspect]
     Dosage: UNK
     Dates: start: 20100301, end: 20130726

REACTIONS (8)
  - Heart rate decreased [Unknown]
  - Dyspnoea [Unknown]
  - Skin discolouration [Unknown]
  - Apparent death [Unknown]
  - Pain [Unknown]
  - Pain in extremity [Unknown]
  - Local swelling [Unknown]
  - Vomiting [Unknown]
